FAERS Safety Report 4906433-9 (Version None)
Quarter: 2006Q1

REPORT INFORMATION
  Report Type: 
  Country: None (occurrence: None)
  Receive Date: 20060206
  Receipt Date: 20060120
  Transmission Date: 20060701
  Serious: Yes (Hospitalization)
  Sender: FDA-Public Use
  Company Number: TRP_0644_2005

PATIENT
  Age: 47 Year
  Sex: Male

DRUGS (15)
  1. RIBASPHERE [Suspect]
     Indication: HEPATITIS C
     Dosage: 1200 MG QDAY PO
     Route: 048
     Dates: start: 20050404, end: 20051001
  2. RIBASPHERE [Suspect]
     Indication: HEPATITIS C
     Dosage: 600 MG QDAY PO
     Route: 048
     Dates: start: 20050101, end: 20051012
  3. INFERGEN/INTERFERON ALFACON-1/INTERMUNE [Suspect]
     Indication: HEPATITIS C
     Dosage: 15 MCG QDAY SC
     Route: 058
     Dates: start: 20050404
  4. MAXZIDE [Concomitant]
  5. ASPIRIN [Concomitant]
  6. OMEPRAZOLE [Concomitant]
  7. CLONAZEPAM [Concomitant]
  8. VENLAFAXINE HCL [Concomitant]
  9. SILDENAFIL [Concomitant]
  10. POTASSIUM CHLORIDE [Concomitant]
  11. TYLENOL (CAPLET) [Concomitant]
  12. MULTIVITAMIN [Concomitant]
  13. CLARITIN [Concomitant]
  14. ATENOLOL [Concomitant]
  15. NITROGLYCERIN [Concomitant]

REACTIONS (13)
  - ARTHRALGIA [None]
  - ATELECTASIS [None]
  - CHEST PAIN [None]
  - CHILLS [None]
  - CREPITATIONS [None]
  - EAR PAIN [None]
  - FATIGUE [None]
  - LOBAR PNEUMONIA [None]
  - LUNG INFILTRATION [None]
  - NIGHT SWEATS [None]
  - PLEURAL EFFUSION [None]
  - PNEUMONITIS [None]
  - PYREXIA [None]
